FAERS Safety Report 4932993-8 (Version None)
Quarter: 2006Q1

REPORT INFORMATION
  Report Type: 
  Country: None (occurrence: None)
  Receive Date: 20060302
  Receipt Date: 20060302
  Transmission Date: 20060701
  Serious: Yes (Life-Threatening, Hospitalization)
  Sender: FDA-Public Use
  Company Number: None

PATIENT
  Age: 48 Year
  Sex: Female

DRUGS (12)
  1. GEODON [Suspect]
     Indication: SCHIZOAFFECTIVE DISORDER
     Dosage: PO BID
     Route: 048
  2. XANAX [Concomitant]
  3. FLONASE [Concomitant]
  4. PLAQUENIL [Concomitant]
  5. SYNTHROID [Concomitant]
  6. PROTONIX [Concomitant]
  7. EFFEXOR XR [Concomitant]
  8. THERAGRAM [Concomitant]
  9. REMERON [Concomitant]
  10. ACIPHEX [Concomitant]
  11. ALBUTEROL [Concomitant]
  12. PROVENTIL [Concomitant]

REACTIONS (3)
  - DIZZINESS [None]
  - ELECTROCARDIOGRAM QT CORRECTED INTERVAL PROLONGED [None]
  - SYNCOPE [None]
